FAERS Safety Report 5528706-1 (Version None)
Quarter: 2007Q4

REPORT INFORMATION
  Report Type: 
  Country: None (occurrence: None)
  Receive Date: 20071129
  Receipt Date: 20071119
  Transmission Date: 20080405
  Serious: Yes (Other)
  Sender: FDA-Public Use
  Company Number: US-JNJFOC-20071107320

PATIENT
  Age: 46 Year
  Sex: Female
  Weight: 58.06 kg

DRUGS (1)
  1. TOPAMAX [Suspect]
     Indication: MIGRAINE PROPHYLAXIS

REACTIONS (3)
  - ALOPECIA [None]
  - HEADACHE [None]
  - SERUM FERRITIN DECREASED [None]
